FAERS Safety Report 9184868 (Version 1)
Quarter: 2013Q1

REPORT INFORMATION
  Report Type: Spontaneous
  Country: US (occurrence: US)
  Receive Date: 20130325
  Receipt Date: 20130325
  Transmission Date: 20140127
  Serious: No
  Sender: FDA-Public Use
  Company Number: US-PFIZER INC-2013095129

PATIENT
  Age: 89 Year
  Sex: Male
  Weight: 68.03 kg

DRUGS (2)
  1. LYRICA [Suspect]
     Indication: FIBROMYALGIA
     Dosage: 100 MG, 3X/DAY
     Route: 048
  2. LUPRON [Concomitant]
     Dosage: UNK

REACTIONS (1)
  - Burning sensation [Unknown]
